FAERS Safety Report 4735465-9 (Version None)
Quarter: 2005Q3

REPORT INFORMATION
  Report Type: 
  Country: None (occurrence: None)
  Receive Date: 20050805
  Receipt Date: 20050413
  Transmission Date: 20060218
  Serious: Yes (Hospitalization, Other)
  Sender: FDA-Public Use
  Company Number: 200513290GDDC

PATIENT
  Age: 65 Year
  Sex: Female

DRUGS (5)
  1. ARAVA [Suspect]
     Indication: RHEUMATOID ARTHRITIS
     Route: 048
     Dates: start: 20041110, end: 20050312
  2. METHOTREXATE [Suspect]
  3. PREDNISONE [Concomitant]
     Route: 048
  4. QUESTRAN [Concomitant]
     Dosage: DOSE: UNK
     Route: 048
     Dates: start: 20050301, end: 20050309
  5. MOBIC [Concomitant]
     Dosage: DOSE: UNK
     Dates: start: 20050301, end: 20050309

REACTIONS (8)
  - ARTHRALGIA [None]
  - DEHYDRATION [None]
  - DIARRHOEA [None]
  - DIZZINESS [None]
  - ESCHERICHIA URINARY TRACT INFECTION [None]
  - NAUSEA [None]
  - NEUTROPHIL COUNT DECREASED [None]
  - WHITE BLOOD CELL COUNT DECREASED [None]
